FAERS Safety Report 24959568 (Version 3)
Quarter: 2025Q2

REPORT INFORMATION
  Report Type: Spontaneous
  Country: JP (occurrence: JP)
  Receive Date: 20250212
  Receipt Date: 20250506
  Transmission Date: 20250716
  Serious: Yes (Hospitalization, Other)
  Sender: ROCHE
  Company Number: JP-CHUGAI-2025003596

PATIENT
  Age: 56 Year
  Sex: Male
  Weight: 70 kg

DRUGS (4)
  1. TAMIFLU [Suspect]
     Active Substance: OSELTAMIVIR PHOSPHATE
     Indication: Influenza
     Dosage: UNK
     Route: 048
     Dates: start: 20250126, end: 20250129
  2. EPRAZINONE [Concomitant]
     Active Substance: EPRAZINONE
     Indication: Influenza
     Route: 050
     Dates: start: 20250126, end: 20250131
  3. CARBOCYSTEINE [Concomitant]
     Active Substance: CARBOCYSTEINE
     Indication: Influenza
     Route: 050
     Dates: start: 20250126, end: 20250131
  4. CALONAL [Concomitant]
     Active Substance: ACETAMINOPHEN
     Indication: Influenza
     Route: 050
     Dates: start: 20250125

REACTIONS (3)
  - Pneumonia [Recovered/Resolved]
  - Hallucination [Recovered/Resolved]
  - Abnormal behaviour [Recovered/Resolved]

NARRATIVE: CASE EVENT DATE: 20250128
